FAERS Safety Report 7161304-5 (Version None)
Quarter: 2010Q4

REPORT INFORMATION
  Report Type: 
  Country: None (occurrence: None)
  Receive Date: 20101210
  Receipt Date: 20101210
  Transmission Date: 20110411
  Serious: Yes (Hospitalization)
  Sender: FDA-Public Use
  Company Number: None

PATIENT
  Age: 88 Year
  Sex: Male
  Weight: 78 kg

DRUGS (1)
  1. WARFARIN SODIUM [Suspect]
     Dosage: MG OTHER PO
     Route: 048
     Dates: start: 20080923, end: 20100506

REACTIONS (5)
  - HAEMOGLOBIN DECREASED [None]
  - HAEMORRHAGE [None]
  - INTERNATIONAL NORMALISED RATIO INCREASED [None]
  - MELAENA [None]
  - RECTAL HAEMORRHAGE [None]
